FAERS Safety Report 13943760 (Version 11)
Quarter: 2019Q1

REPORT INFORMATION
  Report Type: Report from Study
  Country: FR (occurrence: FR)
  Receive Date: 20170907
  Receipt Date: 20190328
  Transmission Date: 20190417
  Serious: Yes (Death, Other)
  Sender: FDA-Public Use
  Company Number: FR-BRISTOL-MYERS SQUIBB COMPANY-BMS-2017-078589

PATIENT
  Age: 61 Year
  Sex: Female

DRUGS (3)
  1. LOGIFLOX [Concomitant]
     Active Substance: LOMEFLOXACIN
     Indication: PRODUCT USED FOR UNKNOWN INDICATION
     Route: 065
  2. AUGMENTIN [Concomitant]
     Active Substance: AMOXICILLIN\CLAVULANATE POTASSIUM
     Indication: PRODUCT USED FOR UNKNOWN INDICATION
     Dosage: UNK
     Route: 065
  3. NIVOLUMAB [Suspect]
     Active Substance: NIVOLUMAB
     Indication: LUNG NEOPLASM MALIGNANT
     Dosage: 171 MG, Q2WK
     Route: 042
     Dates: start: 20170516

REACTIONS (19)
  - Abdominal pain lower [Recovered/Resolved]
  - Abdominal pain upper [Recovered/Resolved]
  - Transient aphasia [Recovered/Resolved]
  - Abdominal pain [Not Recovered/Not Resolved]
  - Phlebitis [Recovered/Resolved]
  - Oral candidiasis [Not Recovered/Not Resolved]
  - Escherichia urinary tract infection [Unknown]
  - Jaundice [Not Recovered/Not Resolved]
  - Malaise [Recovered/Resolved]
  - Hepatic pain [Fatal]
  - Blood brain barrier defect [Unknown]
  - Venous thrombosis [Recovered/Resolved]
  - Muscle spasms [Recovered/Resolved]
  - Dyskinesia [Not Recovered/Not Resolved]
  - Pain in extremity [Unknown]
  - Pulmonary embolism [Not Recovered/Not Resolved]
  - Ischaemic stroke [Not Recovered/Not Resolved]
  - Decreased appetite [Recovered/Resolved]
  - Palpitations [Recovered/Resolved]

NARRATIVE: CASE EVENT DATE: 20170613
